FAERS Safety Report 6109540-0 (Version None)
Quarter: 2009Q1

REPORT INFORMATION
  Report Type: 
  Country: None (occurrence: None)
  Receive Date: 20090310
  Receipt Date: 20090227
  Transmission Date: 20090719
  Serious: Yes (Life-Threatening, Hospitalization)
  Sender: FDA-Public Use
  Company Number: DE-TEVA-187001ISR

PATIENT
  Sex: Male
  Weight: 78 kg

DRUGS (5)
  1. BISOPROLOL [Interacting]
     Indication: CORONARY ARTERY DISEASE
     Route: 048
  2. RAMIPRIL [Interacting]
     Indication: HYPERTENSION
     Route: 048
  3. PHENPROCOUMON [Suspect]
     Indication: PULMONARY EMBOLISM
     Route: 048
  4. FUROSEMIDE [Suspect]
     Indication: RENAL IMPAIRMENT
     Route: 048
     Dates: end: 20080821
  5. HYDROCHLOROTHIAZIDE [Suspect]
     Indication: HYPERTENSION
     Route: 048
     Dates: end: 20080821

REACTIONS (2)
  - DEHYDRATION [None]
  - INTERNATIONAL NORMALISED RATIO INCREASED [None]
